FAERS Safety Report 7362094-3 (Version None)
Quarter: 2011Q1

REPORT INFORMATION
  Report Type: 
  Country: None (occurrence: None)
  Receive Date: 20110318
  Receipt Date: 20110309
  Transmission Date: 20110831
  Serious: Yes (Other)
  Sender: FDA-Public Use
  Company Number: LB-BAYER-2011-021209

PATIENT
  Age: 24 Year
  Sex: Female

DRUGS (4)
  1. ADRIAMYCIN PFS [Suspect]
     Indication: HODGKIN'S DISEASE
     Dosage: 6 CYCLES
     Route: 042
  2. VINBLASTINE SULFATE [Suspect]
     Indication: HODGKIN'S DISEASE
     Dosage: 6 CYCLES
     Route: 042
  3. DACARBAZINE [Suspect]
     Indication: HODGKIN'S DISEASE
     Dosage: SIX CYCLES
     Route: 042
  4. BLEOMYCIN SULFATE [Suspect]
     Indication: HODGKIN'S DISEASE
     Dosage: 6 CYCLES
     Route: 042

REACTIONS (1)
  - THYROID CANCER [None]
